FAERS Safety Report 9092560 (Version 1)
Quarter: 2013Q1

REPORT INFORMATION
  Report Type: Spontaneous
  Country: GB (occurrence: GB)
  Receive Date: 20130201
  Receipt Date: 20130201
  Transmission Date: 20140127
  Serious: Yes (Hospitalization)
  Sender: FDA-Public Use
  Company Number: PHHY2013GB007674

PATIENT
  Age: 68 Year
  Sex: Female

DRUGS (5)
  1. PREDNISOLONE [Suspect]
     Indication: ASTHMA
     Dosage: 20 MG, QD
  2. THEOPHYLLINE [Suspect]
  3. METFORMIN [Suspect]
  4. SINGULAIR [Suspect]
     Indication: ASTHMA
     Dosage: 10 MG, QD
     Route: 048
  5. FLIXOTIDE [Suspect]
     Route: 065

REACTIONS (5)
  - Pyrexia [Recovered/Resolved]
  - Abdominal tenderness [Recovered/Resolved]
  - Abdominal pain [Recovered/Resolved]
  - Peritonitis bacterial [Recovered/Resolved]
  - White blood cell count increased [Recovered/Resolved]
